FAERS Safety Report 8509244-0 (Version None)
Quarter: 2012Q3

REPORT INFORMATION
  Report Type: 
  Country: None (occurrence: None)
  Receive Date: 20120713
  Receipt Date: 20120709
  Transmission Date: 20120928
  Serious: Yes (Hospitalization, Other)
  Sender: FDA-Public Use
  Company Number: BR-PFIZER INC-2011182462

PATIENT
  Age: 72 Year
  Sex: Female

DRUGS (11)
  1. OLMESARTAN MEDOXOMIL [Suspect]
     Indication: HYPERTENSION
     Dosage: 20 MG, UNK
     Route: 048
     Dates: start: 20081001, end: 20120510
  2. XALATAN [Suspect]
     Indication: GLAUCOMA
     Dosage: 3 UG, 1X/DAY
     Route: 047
     Dates: start: 20090101
  3. LIPLESS [Concomitant]
     Indication: BLOOD TRIGLYCERIDES INCREASED
     Dosage: UNK
  4. VERTIX [Concomitant]
     Indication: LABYRINTHITIS
     Dosage: UNK
  5. DIPYRONE [Concomitant]
     Indication: PAIN
     Dosage: UNK
  6. DIACEREIN [Concomitant]
     Indication: OSTEOARTHRITIS
     Dosage: UNK
  7. TIMOLOL MALEATE [Concomitant]
     Indication: GLAUCOMA
     Dosage: TWO DROPS, TWICE A DAY
     Dates: start: 20110101
  8. MELOXICAM [Concomitant]
     Indication: PAIN
     Dosage: UNK
     Dates: start: 20050101
  9. OLMESARTAN MEDOXOMIL AND HYDROCHLOROTHIZIDE [Suspect]
     Indication: HYPERTENSION
     Dosage: 40 MG / 25 MG, 1X/DAY
     Route: 048
     Dates: start: 20070101, end: 20100101
  10. OLMESARTAN MEDOXOMIL [Suspect]
     Dosage: 40 MG, UNK
     Route: 048
     Dates: start: 20081001, end: 20120510
  11. AAS INFANTIL [Concomitant]
     Dosage: UNK

REACTIONS (8)
  - ARTHROPATHY [None]
  - LABYRINTHITIS [None]
  - BLOOD PRESSURE DECREASED [None]
  - UTERINE CANCER [None]
  - MUSCLE SPASMS [None]
  - BLOOD PRESSURE INCREASED [None]
  - INFLUENZA [None]
  - DRUG INEFFECTIVE [None]
